FAERS Safety Report 15537935 (Version 5)
Quarter: 2018Q4

REPORT INFORMATION
  Report Type: Spontaneous
  Country: US (occurrence: US)
  Receive Date: 20181022
  Receipt Date: 20181220
  Transmission Date: 20190205
  Serious: No
  Sender: FDA-Public Use
  Company Number: US-SA-2018SA288642

PATIENT
  Age: 49 Year
  Sex: Male
  Weight: 85.27 kg

DRUGS (1)
  1. TOUJEO [Suspect]
     Active Substance: INSULIN GLARGINE
     Indication: TYPE 2 DIABETES MELLITUS
     Dosage: 34 DF, QD
     Route: 065
     Dates: start: 20180215

REACTIONS (2)
  - Blood glucose increased [Unknown]
  - Product quality issue [Unknown]
